FAERS Safety Report 6244359-1 (Version None)
Quarter: 2009Q2

REPORT INFORMATION
  Report Type: 
  Country: None (occurrence: None)
  Receive Date: 20090625
  Receipt Date: 20090615
  Transmission Date: 20091009
  Serious: Yes (Hospitalization)
  Sender: FDA-Public Use
  Company Number: PHEH2009US06185

PATIENT
  Sex: Male

DRUGS (4)
  1. EXELON [Suspect]
     Dosage: 4.6 MG, QD
     Route: 062
  2. EXELON [Suspect]
     Dosage: 9.5 MG, QD
     Route: 062
  3. EXELON [Suspect]
     Dosage: 4.6 MG, QD
     Route: 062
     Dates: end: 20090614
  4. LIPITOR [Concomitant]

REACTIONS (5)
  - APPLICATION SITE ERYTHEMA [None]
  - APPLICATION SITE PAIN [None]
  - HYPERTENSION [None]
  - NAUSEA [None]
  - VOMITING [None]
